FAERS Safety Report 11802905 (Version 1)
Quarter: 2015Q4

REPORT INFORMATION
  Report Type: Spontaneous
  Country: US (occurrence: US)
  Receive Date: 20151204
  Receipt Date: 20151204
  Transmission Date: 20160305
  Serious: Yes (Other)
  Sender: FDA-Public Use
  Company Number: US-TEVA-614446USA

PATIENT
  Age: 32 Year
  Sex: Male

DRUGS (1)
  1. ZECUITY [Suspect]
     Active Substance: SUMATRIPTAN SUCCINATE
     Route: 062

REACTIONS (4)
  - Application site erythema [Unknown]
  - Application site scar [Unknown]
  - Paraesthesia [Unknown]
  - Application site pruritus [Unknown]

NARRATIVE: CASE EVENT DATE: 20151125
